FAERS Safety Report 13348393 (Version 1)
Quarter: 2017Q1

REPORT INFORMATION
  Report Type: Spontaneous
  Country: US (occurrence: US)
  Receive Date: 20170320
  Receipt Date: 20170320
  Transmission Date: 20170428
  Serious: Yes (Hospitalization)
  Sender: FDA-Public Use
  Company Number: US-CELGENEUS-USA-2017035136

PATIENT
  Sex: Male
  Weight: 35.41 kg

DRUGS (2)
  1. THALOMID [Suspect]
     Active Substance: THALIDOMIDE
     Dosage: 100 MILLIGRAM
     Route: 048
     Dates: start: 20170223
  2. THALOMID [Suspect]
     Active Substance: THALIDOMIDE
     Indication: BRAIN NEOPLASM
     Dosage: 100 MILLIGRAM
     Route: 048
     Dates: start: 20160107

REACTIONS (2)
  - Heart rate decreased [Unknown]
  - Blood sodium decreased [Unknown]
